FAERS Safety Report 24881008 (Version 1)
Quarter: 2025Q1

REPORT INFORMATION
  Report Type: Spontaneous
  Country: US (occurrence: US)
  Receive Date: 20250124
  Receipt Date: 20250124
  Transmission Date: 20250409
  Serious: Yes (Other)
  Sender: SANDOZ
  Company Number: US-002147023-NVSC2023US149760

PATIENT
  Sex: Male
  Weight: 87.54 kg

DRUGS (4)
  1. COSENTYX [Suspect]
     Active Substance: SECUKINUMAB
     Indication: Psoriasis
     Route: 065
     Dates: end: 202212
  2. FOLIC ACID [Suspect]
     Active Substance: FOLIC ACID
     Indication: Psoriasis
     Route: 065
  3. METHOTREXATE [Suspect]
     Active Substance: METHOTREXATE
     Indication: Psoriasis
     Route: 065
  4. TRIAMCINOLONE [Suspect]
     Active Substance: TRIAMCINOLONE
     Indication: Psoriasis
     Route: 065

REACTIONS (4)
  - Psoriatic arthropathy [Unknown]
  - Psoriasis [Unknown]
  - Pruritus [Unknown]
  - Drug ineffective [Unknown]
